FAERS Safety Report 15259193 (Version 1)
Quarter: 2018Q3

REPORT INFORMATION
  Report Type: Spontaneous
  Country: US (occurrence: US)
  Receive Date: 20180719
  Receipt Date: 20180719
  Transmission Date: 20181010
  Serious: Yes (Hospitalization)
  Sender: FDA-Public Use
  Company Number: None

PATIENT
  Age: 71 Year
  Sex: Female
  Weight: 75.6 kg

DRUGS (2)
  1. SPRYCEL [Concomitant]
     Active Substance: DASATINIB
     Dates: start: 20180712, end: 20180717
  2. SPRYCEL [Suspect]
     Active Substance: DASATINIB
     Indication: CHRONIC MYELOID LEUKAEMIA
     Route: 048

REACTIONS (20)
  - Diarrhoea [None]
  - Neutrophilia [None]
  - Dehydration [None]
  - Thrombocytopenia [None]
  - Hepatic cirrhosis [None]
  - Vomiting [None]
  - Coagulation factor X level decreased [None]
  - Hyponatraemia [None]
  - Fatigue [None]
  - Haemolysis [None]
  - Hepatic enzyme increased [None]
  - Haematuria [None]
  - Acute kidney injury [None]
  - Leukocytosis [None]
  - Abdominal pain [None]
  - Hypophagia [None]
  - Prothrombin time prolonged [None]
  - Contusion [None]
  - Asthenia [None]
  - Hyperbilirubinaemia [None]

NARRATIVE: CASE EVENT DATE: 20180716
